FAERS Safety Report 7654548-7 (Version None)
Quarter: 2011Q3

REPORT INFORMATION
  Report Type: 
  Country: None (occurrence: None)
  Receive Date: 20110803
  Receipt Date: 20110729
  Transmission Date: 20111222
  Serious: Yes (Hospitalization)
  Sender: FDA-Public Use
  Company Number: FR-MERCK-1103FRA00050

PATIENT
  Age: 57 Year
  Sex: Male
  Weight: 76 kg

DRUGS (2)
  1. METFORMIN HCL [Suspect]
     Indication: TYPE 2 DIABETES MELLITUS
     Route: 048
     Dates: end: 20110201
  2. JANUVIA [Suspect]
     Indication: TYPE 2 DIABETES MELLITUS
     Route: 065
     Dates: start: 20100204, end: 20100901

REACTIONS (2)
  - DRUG INEFFECTIVE [None]
  - DIABETES MELLITUS INADEQUATE CONTROL [None]
